FAERS Safety Report 5455856-0 (Version None)
Quarter: 2007Q3

REPORT INFORMATION
  Report Type: 
  Country: None (occurrence: None)
  Receive Date: 20070914
  Receipt Date: 20070914
  Transmission Date: 20080115
  Serious: Yes (Life-Threatening, Hospitalization)
  Sender: FDA-Public Use
  Company Number: None

PATIENT
  Age: 61 Year
  Sex: Female
  Weight: 75 kg

DRUGS (9)
  1. HERCEPTIN [Suspect]
     Indication: BREAST CANCER
     Dosage: IV
     Route: 042
  2. MEGESTROL ACETATE [Suspect]
  3. LEVOFLOXACIN [Suspect]
  4. PREDNISONE [Suspect]
  5. WARFARIN SODIUM [Suspect]
  6. TEMAZEPAM [Suspect]
  7. METHYLPREDNISOLONE [Concomitant]
  8. AZITHROMYCIN [Concomitant]
  9. PIPERACILLIN AND TAZOBACTAM [Concomitant]

REACTIONS (2)
  - ACUTE RESPIRATORY FAILURE [None]
  - PNEUMONITIS [None]
